FAERS Safety Report 18673807 (Version 1)
Quarter: 2020Q4

REPORT INFORMATION
  Report Type: Spontaneous
  Country: US (occurrence: US)
  Receive Date: 20201228
  Receipt Date: 20201228
  Transmission Date: 20210114
  Serious: No
  Sender: FDA-Public Use
  Company Number: US-UPSHER-SMITH LABORATORIES, LLC-2020USL00371

PATIENT
  Age: 29 Year
  Sex: Female
  Weight: 49.89 kg

DRUGS (4)
  1. CLONAZEPAM (SOLCO) [Suspect]
     Active Substance: CLONAZEPAM
     Dosage: 0.25 TO 0.5 MG, 2X/DAY (AM AND PM)
     Dates: start: 20200603
  2. CLONAZEPAM (SOLCO) [Suspect]
     Active Substance: CLONAZEPAM
     Dosage: 0.25 TO 0.5 MG, 2X/DAY (AM AND PM)
     Dates: start: 20200603
  3. FLUVOXAMINE MALEATE. [Suspect]
     Active Substance: FLUVOXAMINE MALEATE
     Indication: DEPRESSION
     Dosage: 25 MG, 1X/DAY
     Route: 048
     Dates: start: 20200603, end: 20200609
  4. FLUVOXAMINE MALEATE. [Suspect]
     Active Substance: FLUVOXAMINE MALEATE
     Indication: OBSESSIVE-COMPULSIVE DISORDER
     Dosage: 50 MG, 1X/DAY
     Route: 048
     Dates: start: 20200610

REACTIONS (4)
  - Diarrhoea [Not Recovered/Not Resolved]
  - Food aversion [Not Recovered/Not Resolved]
  - Retching [Not Recovered/Not Resolved]
  - Nausea [Not Recovered/Not Resolved]

NARRATIVE: CASE EVENT DATE: 202006
